FAERS Safety Report 25277617 (Version 1)
Quarter: 2025Q2

REPORT INFORMATION
  Report Type: Spontaneous
  Country: US (occurrence: US)
  Receive Date: 20250507
  Receipt Date: 20250507
  Transmission Date: 20250716
  Serious: No
  Sender: HIKMA
  Company Number: US-HIKMA PHARMACEUTICALS USA INC.-US-H14001-24-08166

PATIENT
  Age: 68 Year
  Sex: Female

DRUGS (7)
  1. AMIKACIN [Suspect]
     Active Substance: AMIKACIN
     Indication: Pneumonia
     Dosage: 1 DOSAGE FORM, QD, IN THE AFTERNOON
     Route: 065
  2. AZITHROMYCIN [Suspect]
     Active Substance: AZITHROMYCIN
     Indication: Pneumonia
     Dosage: 1 DOSAGE FORM, QD. IN THE AFTERNOON
     Route: 065
  3. NUZYRA [Suspect]
     Active Substance: OMADACYCLINE
     Indication: Pneumonia
     Dosage: 300 MILLIGRAM, QD, IN THE MORNING
     Route: 048
     Dates: start: 20240715
  4. NUZYRA [Suspect]
     Active Substance: OMADACYCLINE
     Indication: Bronchiectasis
  5. CALCIUM;COLECALCIFEROL;ZINC [Concomitant]
     Indication: Product used for unknown indication
     Dosage: 1 DOSAGE FORM, BID, IN THE EVENING
     Route: 065
  6. FOSAMAX [Concomitant]
     Active Substance: ALENDRONATE SODIUM
     Indication: Product used for unknown indication
     Route: 065
  7. SODIUM CHLORIDE [Concomitant]
     Active Substance: SODIUM CHLORIDE
     Indication: Product used for unknown indication
     Dosage: UNKNOWN, BID, IN THE MORNING AND IN THE EVENING
     Route: 065

REACTIONS (6)
  - Abdominal distension [Recovering/Resolving]
  - Nausea [Recovering/Resolving]
  - Frequent bowel movements [Recovering/Resolving]
  - Fatigue [Recovering/Resolving]
  - Abdominal discomfort [Recovering/Resolving]
  - Dizziness [Recovered/Resolved]

NARRATIVE: CASE EVENT DATE: 20240715
